FAERS Safety Report 6740754-2 (Version None)
Quarter: 2010Q2

REPORT INFORMATION
  Report Type: 
  Country: None (occurrence: None)
  Receive Date: 20100524
  Receipt Date: 20100512
  Transmission Date: 20101027
  Serious: Yes (Death)
  Sender: FDA-Public Use
  Company Number: KV200900716

PATIENT
  Age: 48 Year
  Sex: Female
  Weight: 63.5 kg

DRUGS (6)
  1. MORPHINE SULFATE [Suspect]
     Indication: BACK PAIN
     Dosage: 15 MG, TID, ORAL
     Route: 048
     Dates: start: 20080411, end: 20081026
  2. MORPHINE SULFATE [Suspect]
     Indication: BACK PAIN
     Dosage: 30 MG, TID, ORAL
     Route: 048
     Dates: start: 20080411, end: 20081026
  3. SEROQUEL [Concomitant]
  4. TRAZODONE HCL [Concomitant]
  5. NORTRIPTYLINE HCL [Concomitant]
  6. NEURONTIN [Concomitant]

REACTIONS (14)
  - ARTERIOSCLEROSIS CORONARY ARTERY [None]
  - BACK PAIN [None]
  - CARDIAC DISORDER [None]
  - CARDIOMEGALY [None]
  - CONDITION AGGRAVATED [None]
  - DRUG SCREEN POSITIVE [None]
  - EMPHYSEMA [None]
  - FALL [None]
  - NEPHROSCLEROSIS [None]
  - PULMONARY CONGESTION [None]
  - PULMONARY OEDEMA [None]
  - SCAR [None]
  - THERAPEUTIC AGENT TOXICITY [None]
  - UNRESPONSIVE TO STIMULI [None]
